FAERS Safety Report 10996958 (Version 1)
Quarter: 2015Q1

REPORT INFORMATION
  Report Type: Spontaneous
  Country: US (occurrence: None)
  Receive Date: 20150330
  Receipt Date: 20150330
  Transmission Date: 20150721
  Serious: Yes (Other)
  Sender: FDA-Public Use
  Company Number: 2014TUS001562

PATIENT
  Age: 31 Year
  Sex: Female
  Weight: 130 kg

DRUGS (1)
  1. DEXILANT [Suspect]
     Active Substance: DEXLANSOPRAZOLE
     Indication: GASTROOESOPHAGEAL REFLUX DISEASE
     Dosage: 60 MG, QD PRN
     Route: 048
     Dates: start: 20110901, end: 20140227

REACTIONS (6)
  - Urticaria [None]
  - Hypoaesthesia [None]
  - Pruritus generalised [None]
  - Anaphylactic reaction [None]
  - Paraesthesia oral [None]
  - Swelling [None]

NARRATIVE: CASE EVENT DATE: 20140121
